FAERS Safety Report 22077704 (Version 1)
Quarter: 2023Q1

REPORT INFORMATION
  Report Type: Report from Study
  Country: SA (occurrence: SA)
  Receive Date: 20230309
  Receipt Date: 20230309
  Transmission Date: 20230418
  Serious: Yes (Other)
  Sender: FDA-Public Use
  Company Number: SA-GLAXOSMITHKLINE-SA2022EME115621

PATIENT

DRUGS (1)
  1. BELIMUMAB [Suspect]
     Active Substance: BELIMUMAB
     Indication: Systemic lupus erythematosus
     Dosage: 10 MG/KG, Z,MONTHLY
     Route: 042
     Dates: start: 20190601

REACTIONS (14)
  - Pulmonary fibrosis [Recovered/Resolved]
  - Pneumonitis [Unknown]
  - Somnolence [Unknown]
  - Fatigue [Unknown]
  - Pyrexia [Unknown]
  - Muscular weakness [Unknown]
  - Arthralgia [Not Recovered/Not Resolved]
  - Pain in jaw [Not Recovered/Not Resolved]
  - Muscle tightness [Not Recovered/Not Resolved]
  - Gout [Not Recovered/Not Resolved]
  - Viral infection [Unknown]
  - Blood cholesterol increased [Not Recovered/Not Resolved]
  - Product availability issue [Unknown]
  - Product dose omission issue [Not Recovered/Not Resolved]

NARRATIVE: CASE EVENT DATE: 20190601
